FAERS Safety Report 15995666 (Version 3)
Quarter: 2024Q4

REPORT INFORMATION
  Report Type: Spontaneous
  Country: IT (occurrence: IT)
  Receive Date: 20190222
  Receipt Date: 20241028
  Transmission Date: 20250114
  Serious: Yes (Death)
  Sender: BAUSCH AND LOMB
  Company Number: IT-NOVPHSZ-GXKR2004IT04609

PATIENT
  Age: 45 Year
  Sex: Female

DRUGS (28)
  1. DIASTAT [Suspect]
     Active Substance: DIAZEPAM
     Indication: Agitation
     Dosage: ADMINISTERED DAILY
     Route: 065
     Dates: start: 20021009, end: 20021104
  2. DIASTAT [Suspect]
     Active Substance: DIAZEPAM
     Indication: Hallucination
  3. RABEPRAZOLE [Suspect]
     Active Substance: RABEPRAZOLE
     Indication: Product used for unknown indication
     Dosage: TILL ADMISSION
     Route: 065
     Dates: end: 200209
  4. METOCLOPRAMIDE [Suspect]
     Active Substance: METOCLOPRAMIDE
     Indication: Product used for unknown indication
     Dosage: TILL ADMISSION
     Route: 065
     Dates: end: 200211
  5. BETAMETHASONE [Suspect]
     Active Substance: BETAMETHASONE
     Indication: Product used for unknown indication
     Dosage: TILL ADMISSION
     Route: 065
     Dates: end: 200209
  6. NYSTATIN [Suspect]
     Active Substance: NYSTATIN
     Indication: Oral candidiasis
     Dosage: TILL ADMISSION
     Route: 065
     Dates: end: 200209
  7. NYSTATIN [Suspect]
     Active Substance: NYSTATIN
     Indication: Cystitis
     Route: 065
     Dates: start: 20020927, end: 20021010
  8. CEFACLOR [Suspect]
     Active Substance: CEFACLOR
     Indication: Oral candidiasis
     Dosage: TILL ADMISSION
     Route: 065
     Dates: end: 200209
  9. CEFACLOR [Suspect]
     Active Substance: CEFACLOR
     Indication: Cystitis
  10. OMEPRAZOLE [Suspect]
     Active Substance: OMEPRAZOLE
     Indication: Product used for unknown indication
     Route: 065
     Dates: start: 20020927, end: 20021102
  11. CORTISONE ACETATE [Suspect]
     Active Substance: CORTISONE ACETATE
     Indication: Product used for unknown indication
     Route: 065
     Dates: start: 20020927, end: 20021102
  12. CALCITRIOL [Suspect]
     Active Substance: CALCITRIOL
     Indication: Product used for unknown indication
     Dosage: AT 08:00 HOURS
     Route: 065
     Dates: start: 20020927, end: 20021104
  13. FLUDROCORTISONE [Suspect]
     Active Substance: FLUDROCORTISONE
     Indication: Product used for unknown indication
     Route: 065
     Dates: start: 20020927, end: 20021024
  14. AMOXICILLIN\CLAVULANIC ACID [Suspect]
     Active Substance: AMOXICILLIN\CLAVULANIC ACID
     Indication: Pyrexia
     Route: 042
     Dates: start: 20021004, end: 20021019
  15. AMOXICILLIN\CLAVULANIC ACID [Suspect]
     Active Substance: AMOXICILLIN\CLAVULANIC ACID
     Indication: Respiratory distress
  16. LEVOFLOXACIN [Suspect]
     Active Substance: LEVOFLOXACIN
     Indication: Pyrexia
     Route: 048
     Dates: start: 20021004, end: 20021019
  17. LEVOFLOXACIN [Suspect]
     Active Substance: LEVOFLOXACIN
     Indication: Respiratory distress
  18. FUROSEMIDE [Suspect]
     Active Substance: FUROSEMIDE
     Indication: Oliguria
     Route: 048
     Dates: start: 20021004, end: 20021015
  19. FUROSEMIDE [Suspect]
     Active Substance: FUROSEMIDE
     Route: 042
     Dates: start: 20021027, end: 20021103
  20. HALOPERIDOL [Suspect]
     Active Substance: HALOPERIDOL
     Indication: Hallucination
     Dosage: ADMINISTERED DAILY
     Route: 065
     Dates: start: 20021009, end: 20021104
  21. HALOPERIDOL [Suspect]
     Active Substance: HALOPERIDOL
     Indication: Agitation
  22. ITRACONAZOLE [Suspect]
     Active Substance: ITRACONAZOLE
     Indication: Product used for unknown indication
     Dosage: 100 MG/DAY
     Route: 065
     Dates: start: 20021009, end: 20021104
  23. PANTOPRAZOLE [Suspect]
     Active Substance: PANTOPRAZOLE
     Indication: Product used for unknown indication
     Route: 065
     Dates: start: 20021009, end: 20021018
  24. CALCIUM GLUCONATE [Suspect]
     Active Substance: CALCIUM GLUCONATE
     Indication: Hypocalcaemia
     Route: 065
     Dates: start: 20021009, end: 20021103
  25. CALCIUM GLUCONATE [Suspect]
     Active Substance: CALCIUM GLUCONATE
     Indication: Hypokalaemia
  26. POTASSIUM CHLORIDE [Concomitant]
     Active Substance: POTASSIUM CHLORIDE
     Indication: Hypocalcaemia
     Route: 065
     Dates: start: 20021009
  27. POTASSIUM CHLORIDE [Concomitant]
     Active Substance: POTASSIUM CHLORIDE
     Indication: Hypokalaemia
  28. SODIUM CHLORIDE [Concomitant]
     Active Substance: SODIUM CHLORIDE
     Indication: Product used for unknown indication
     Route: 065
     Dates: start: 2002

REACTIONS (2)
  - Toxic epidermal necrolysis [Fatal]
  - Septic shock [Fatal]

NARRATIVE: CASE EVENT DATE: 20020101
